FAERS Safety Report 24436223 (Version 1)
Quarter: 2024Q4

REPORT INFORMATION
  Report Type: Report from Study
  Country: DE (occurrence: DE)
  Receive Date: 20241015
  Receipt Date: 20241015
  Transmission Date: 20250115
  Serious: Yes (Other)
  Sender: PANACEA BIOTEC PHARMA LIMITED
  Company Number: None

PATIENT
  Age: 5 Year
  Sex: Female

DRUGS (22)
  1. TACROLIMUS [Suspect]
     Active Substance: TACROLIMUS
     Indication: Bone marrow conditioning regimen
     Route: 048
  2. MYCOPHENOLATE MOFETIL [Suspect]
     Active Substance: MYCOPHENOLATE MOFETIL
     Indication: Prophylaxis against graft versus host disease
     Dosage: 15 MG/KG, TID FROM DAY +5 TO DAY +35
     Route: 065
  3. TREOSULFAN [Suspect]
     Active Substance: TREOSULFAN
     Indication: Bone marrow conditioning regimen
     Dosage: ON DAYS -7 TO -5 14G/M2
     Route: 065
  4. THIOTEPA [Suspect]
     Active Substance: THIOTEPA
     Indication: Sickle cell disease
     Dosage: 10 MG/KG DAILY; 2 X 5 MG/KG ON DAY -4 OF THE HSCT
     Route: 065
  5. FLUDARABINE [Suspect]
     Active Substance: FLUDARABINE PHOSPHATE
     Indication: Sickle cell disease
     Route: 065
  6. ALEMTUZUMAB [Suspect]
     Active Substance: ALEMTUZUMAB
     Indication: Sickle cell disease
     Dosage: .2 MG/KG DAILY; 0.2 MILLIGRAM/KILOGRAM, ONCE A DAY, ON DAYS -9 AND -8 OF THE HSCT
     Route: 065
  7. CYCLOPHOSPHAMIDE [Suspect]
     Active Substance: CYCLOPHOSPHAMIDE
     Indication: Bone marrow conditioning regimen
     Dosage: 14.5 MG/KG DAILY; 2 X 14.5 MG/KG/DAY (DAYS -3 TO -2) OF THE HSCT
     Route: 065
  8. LEVETIRACETAM [Concomitant]
     Active Substance: LEVETIRACETAM
     Indication: Prophylaxis
     Route: 065
  9. GRANULOCYTE COLONY-STIMULATING FACTOR NOS [Concomitant]
     Active Substance: GRANULOCYTE COLONY-STIMULATING FACTOR NOS
     Indication: Product used for unknown indication
     Dosage: 5 G/KG/DAY FROM DAY +5 UNTIL ENGRAFTMENT
     Route: 065
  10. HYDROXYUREA [Concomitant]
     Active Substance: HYDROXYUREA
     Indication: Sickle cell disease
     Route: 065
  11. CYCLOPHOSPHAMIDE [Suspect]
     Active Substance: CYCLOPHOSPHAMIDE
     Indication: Stem cell transplant
     Dosage: 2 X 50 MG/KG/DAY ON DAYS +3 AND +4
     Route: 065
  12. FLUDARABINE [Suspect]
     Active Substance: FLUDARABINE PHOSPHATE
     Indication: Bone marrow conditioning regimen
     Dosage: 30 MG/M2 DAILY; 5 X 30 MG/M 2 /DAY (DAYS -7 TO -3)OF THE HSCT
     Route: 065
  13. CYCLOPHOSPHAMIDE [Suspect]
     Active Substance: CYCLOPHOSPHAMIDE
     Indication: Prophylaxis against graft versus host disease
  14. TREOSULFAN [Suspect]
     Active Substance: TREOSULFAN
     Indication: Sickle cell disease
     Dosage: 3 X 14 G/M 2 /DAY (DAYS -7 TO -5) OF THE HSCT
     Route: 065
  15. TACROLIMUS [Suspect]
     Active Substance: TACROLIMUS
     Indication: Stem cell transplant
     Route: 042
  16. MYCOPHENOLATE MOFETIL [Suspect]
     Active Substance: MYCOPHENOLATE MOFETIL
     Indication: Bone marrow conditioning regimen
     Dosage: 15 MG/KG, TID FROM DAY +5 TO DAY +35
     Route: 065
  17. TACROLIMUS [Suspect]
     Active Substance: TACROLIMUS
     Indication: Product used for unknown indication
     Route: 048
  18. TACROLIMUS [Suspect]
     Active Substance: TACROLIMUS
     Indication: Prophylaxis against graft versus host disease
     Route: 065
  19. ALEMTUZUMAB [Suspect]
     Active Substance: ALEMTUZUMAB
     Indication: Immunosuppression
     Dosage: .2 MG/KG DAILY; 0.2 MILLIGRAM/KILOGRAM, ONCE A DAY, ON DAYS -9 AND -8 OF THE HSCT
     Route: 065
  20. THIOTEPA [Suspect]
     Active Substance: THIOTEPA
     Indication: Bone marrow conditioning regimen
     Dosage: 10 MG/KG DAILY; 2 X 5 MG/KG ON DAY -4 OF THE HSCT
  21. MYCOPHENOLATE MOFETIL [Suspect]
     Active Substance: MYCOPHENOLATE MOFETIL
     Indication: Stem cell transplant
     Dosage: 15 MG/KG,TID FROM DAY +5 TO DAY +35
     Route: 065
  22. ALEMTUZUMAB [Suspect]
     Active Substance: ALEMTUZUMAB
     Indication: Bone marrow conditioning regimen
     Dosage: .2 MG/KG DAILY; 0.2 MILLIGRAM/KILOGRAM, ONCE A DAY, ON DAYS -9 AND -8 OF THE HSCT

REACTIONS (5)
  - Mucosal inflammation [Unknown]
  - Varicella zoster virus infection [Unknown]
  - Intentional product use issue [Unknown]
  - Graft versus host disease in skin [Unknown]
  - Cytomegalovirus infection reactivation [Recovered/Resolved]
